FAERS Safety Report 4820211-0 (Version None)
Quarter: 2005Q4

REPORT INFORMATION
  Report Type: 
  Country: None (occurrence: None)
  Receive Date: 20051014
  Receipt Date: 20050802
  Transmission Date: 20060501
  Serious: No
  Sender: FDA-Public Use
  Company Number: 2005SP002188

PATIENT
  Age: 59 Year
  Sex: Female
  Weight: 83.4619 kg

DRUGS (3)
  1. LUNESTA ( 3MG) [Suspect]
     Indication: INSOMNIA
     Dosage: 3 MG;HS;ORAL; 4.5 MG;HS;ORAL;9 G;HS;ORAL
     Route: 048
     Dates: start: 20050101, end: 20050101
  2. LUNESTA ( 3MG) [Suspect]
     Indication: INSOMNIA
     Dosage: 3 MG;HS;ORAL; 4.5 MG;HS;ORAL;9 G;HS;ORAL
     Route: 048
     Dates: start: 20050709, end: 20050701
  3. LUNESTA ( 3MG) [Suspect]
     Indication: INSOMNIA
     Dosage: 3 MG;HS;ORAL; 4.5 MG;HS;ORAL;9 G;HS;ORAL
     Route: 048
     Dates: start: 20050701

REACTIONS (4)
  - DRUG INEFFECTIVE [None]
  - DYSGEUSIA [None]
  - DYSPEPSIA [None]
  - INSOMNIA [None]
